FAERS Safety Report 21349316 (Version 11)
Quarter: 2024Q3

REPORT INFORMATION
  Report Type: Spontaneous
  Country: US (occurrence: US)
  Receive Date: 20220919
  Receipt Date: 20240709
  Transmission Date: 20241017
  Serious: Yes (Other)
  Sender: BRISTOL MYERS SQUIBB
  Company Number: US-BRISTOL-MYERS SQUIBB COMPANY-2022-107259

PATIENT
  Age: 76 Year
  Sex: Male

DRUGS (2)
  1. REVLIMID [Suspect]
     Active Substance: LENALIDOMIDE
     Indication: Plasma cell myeloma
     Dosage: FREQUENCY: EVERY OTHER DAY
     Route: 048
     Dates: start: 202208
  2. REVLIMID [Suspect]
     Active Substance: LENALIDOMIDE
     Indication: Plasma cell myeloma in remission
     Dosage: 10 MG QD FOR 21 DAYS ON 7 DAYS OFF/TAKE 1 CAPSULE BY MOUTH DAILY FOR 21 DAYS, THEN 7
     Route: 048

REACTIONS (17)
  - Rash pruritic [Recovered/Resolved]
  - Skin exfoliation [Recovering/Resolving]
  - Fatigue [Unknown]
  - Neuropathy peripheral [Unknown]
  - Inappropriate schedule of product administration [Unknown]
  - Slow speech [Unknown]
  - Walking disability [Unknown]
  - Off label use [Unknown]
  - Mental disorder [Recovering/Resolving]
  - Pain in extremity [Unknown]
  - Hyperhidrosis [Unknown]
  - Inability to afford medication [Unknown]
  - Therapy interrupted [Unknown]
  - Contusion [Unknown]
  - Skin disorder [Unknown]
  - Diarrhoea [Unknown]
  - Haemorrhage [Unknown]

NARRATIVE: CASE EVENT DATE: 20220915
